FAERS Safety Report 24236996 (Version 3)
Quarter: 2024Q4

REPORT INFORMATION
  Report Type: Report from Study
  Country: CA (occurrence: CA)
  Receive Date: 20240822
  Receipt Date: 20241030
  Transmission Date: 20250115
  Serious: Yes (Other)
  Sender: CURRAX PHARMACEUTICALS
  Company Number: CA-BAUSCH-BL-2023-010567

PATIENT
  Sex: Female
  Weight: 72.562 kg

DRUGS (11)
  1. CONTRAVE [Suspect]
     Active Substance: BUPROPION HYDROCHLORIDE\NALTREXONE HYDROCHLORIDE
     Indication: Weight control
     Dosage: 90/8MG, 1 TAB BID (1 DOSAGE FORMS,1 IN 12 HR)
     Route: 048
     Dates: start: 20230707, end: 20230721
  2. CONTRAVE [Suspect]
     Active Substance: BUPROPION HYDROCHLORIDE\NALTREXONE HYDROCHLORIDE
     Dosage: 90/8 MG, 1 TABLET QAM (SECOND ATTEMPT)
     Route: 048
     Dates: start: 20230916, end: 20230922
  3. CONTRAVE [Suspect]
     Active Substance: BUPROPION HYDROCHLORIDE\NALTREXONE HYDROCHLORIDE
     Dosage: 90/8MG 1 TABLET QAM, 1 TABLET QPM
     Route: 048
     Dates: start: 20230923, end: 2023
  4. CONTRAVE [Suspect]
     Active Substance: BUPROPION HYDROCHLORIDE\NALTREXONE HYDROCHLORIDE
     Dosage: 90/8MG, 2 TABLETS QAM, 1 TABLET QPM
     Route: 048
     Dates: start: 202310, end: 202310
  5. CONTRAVE [Suspect]
     Active Substance: BUPROPION HYDROCHLORIDE\NALTREXONE HYDROCHLORIDE
     Dosage: 90/8MG, 2 TABLETS QAM, 2 TABLETS QPM
     Route: 048
     Dates: start: 202310, end: 20231028
  6. CONTRAVE [Suspect]
     Active Substance: BUPROPION HYDROCHLORIDE\NALTREXONE HYDROCHLORIDE
     Dosage: 90/8MG, 3 TABLETS QAM, 3 TABLETS QPM
     Route: 048
     Dates: start: 20231029, end: 20231106
  7. CONTRAVE [Suspect]
     Active Substance: BUPROPION HYDROCHLORIDE\NALTREXONE HYDROCHLORIDE
     Dosage: 90/8MG, 2 TABLETS QAM, 2 TABLETS QPM
     Route: 048
     Dates: start: 20231107, end: 20240318
  8. CONTRAVE [Suspect]
     Active Substance: BUPROPION HYDROCHLORIDE\NALTREXONE HYDROCHLORIDE
     Dosage: 90/8 MG, 1 TABLET/DAY (THIRD ATTEMPT)
     Route: 048
     Dates: start: 20240321, end: 20240324
  9. CONTRAVE [Suspect]
     Active Substance: BUPROPION HYDROCHLORIDE\NALTREXONE HYDROCHLORIDE
     Dosage: 90/8 MG, BACK UP TO 2 AND 2 TABLETS/DAY (2 DOSAGE FORMS,1 IN 12 HR)
     Route: 048
     Dates: start: 20240325
  10. VENLAFAXINE [Concomitant]
     Active Substance: VENLAFAXINE HYDROCHLORIDE
     Indication: Depression
     Dosage: UNK
  11. VENLAFAXINE [Concomitant]
     Active Substance: VENLAFAXINE HYDROCHLORIDE
     Indication: Anxiety

REACTIONS (35)
  - Dyskinesia [Recovering/Resolving]
  - Motor dysfunction [Unknown]
  - Pain in extremity [Unknown]
  - Muscle spasms [Unknown]
  - Headache [Unknown]
  - Dizziness [Unknown]
  - Asthenia [Unknown]
  - Feeling abnormal [Unknown]
  - Carpal tunnel syndrome [Not Recovered/Not Resolved]
  - Ulnar nerve injury [Not Recovered/Not Resolved]
  - Spinal osteoarthritis [Not Recovered/Not Resolved]
  - Neck mass [Not Recovered/Not Resolved]
  - Weight increased [Unknown]
  - Hunger [Unknown]
  - Food craving [Unknown]
  - Vitamin A decreased [Unknown]
  - Blood iron decreased [Unknown]
  - Throat irritation [Recovered/Resolved]
  - Hypersomnia [Unknown]
  - Electrocardiogram abnormal [Unknown]
  - Muscular weakness [Not Recovered/Not Resolved]
  - Sinusitis [Recovered/Resolved]
  - Nasopharyngitis [Recovered/Resolved]
  - Paraesthesia [Not Recovered/Not Resolved]
  - Ear discomfort [Not Recovered/Not Resolved]
  - Fatigue [Recovered/Resolved]
  - Inability to afford medication [Unknown]
  - Therapy interrupted [Unknown]
  - Drug titration error [Unknown]
  - Product use issue [Unknown]
  - Product dispensing error [Unknown]
  - Product prescribing issue [Unknown]
  - Intentional dose omission [Unknown]
  - Underdose [Unknown]
  - Overdose [Unknown]

NARRATIVE: CASE EVENT DATE: 20230101
